FAERS Safety Report 7103388-6 (Version None)
Quarter: 2010Q4

REPORT INFORMATION
  Report Type: 
  Country: None (occurrence: None)
  Receive Date: 20101115
  Receipt Date: 20101111
  Transmission Date: 20110411
  Serious: Yes (Hospitalization)
  Sender: FDA-Public Use
  Company Number: CHPA2010IT17094

PATIENT
  Sex: Female

DRUGS (4)
  1. GLYSENNID [Suspect]
     Dosage: 20 DF, UNK
     Route: 048
     Dates: start: 20101006, end: 20101008
  2. FELISON [Concomitant]
     Dosage: 60 MG, UNK
     Route: 065
  3. MINIAS [Concomitant]
     Dosage: 20 GTT, UNK
     Route: 065
  4. SEROQUEL [Concomitant]
     Dosage: 400 MG, UNK
     Route: 065

REACTIONS (2)
  - ASTHENIA [None]
  - BLOOD POTASSIUM DECREASED [None]
